FAERS Safety Report 4548019-4 (Version None)
Quarter: 2004Q4

REPORT INFORMATION
  Report Type: 
  Country: None (occurrence: None)
  Receive Date: 20041220
  Receipt Date: 20040625
  Transmission Date: 20050328
  Serious: Yes (Hospitalization)
  Sender: FDA-Public Use
  Company Number: USA040671170

PATIENT
  Age: 62 Year
  Sex: Female

DRUGS (4)
  1. HUMALOG [Suspect]
     Indication: DIABETES MELLITUS
     Dates: start: 20040507
  2. HUMULIN R [Suspect]
     Dates: start: 20040101, end: 20040501
  3. SYNTHROID [Concomitant]
  4. GLUCOPHAGE [Concomitant]

REACTIONS (2)
  - STAPHYLOCOCCAL INFECTION [None]
  - WEIGHT DECREASED [None]
